APPROVED DRUG PRODUCT: ORPHENADRINE CITRATE
Active Ingredient: ORPHENADRINE CITRATE
Strength: 100MG
Dosage Form/Route: TABLET, EXTENDED RELEASE;ORAL
Application: A040284 | Product #001 | TE Code: AB
Applicant: LUPIN INC
Approved: Jun 19, 1998 | RLD: No | RS: Yes | Type: RX